FAERS Safety Report 4961731-8 (Version None)
Quarter: 2006Q1

REPORT INFORMATION
  Report Type: 
  Country: None (occurrence: None)
  Receive Date: 20060329
  Receipt Date: 20060310
  Transmission Date: 20060701
  Serious: Yes (Hospitalization)
  Sender: FDA-Public Use
  Company Number: FRWYE460510MAR06

PATIENT
  Sex: Female

DRUGS (2)
  1. BISOPROLOL FUMARATE [Suspect]
     Indication: HYPERTENSION
     Dosage: 10 MG 1X PER 1 DAY, TRANSPLACENTAL
     Route: 064
     Dates: start: 19960615
  2. ASPEGIC 1000 [Suspect]
     Dosage: 100 MG 1X PER 1 DAY, TRANSPLACENTAL
     Route: 064

REACTIONS (12)
  - ATRIAL SEPTAL DEFECT [None]
  - DRUG EXPOSURE DURING PREGNANCY [None]
  - FOETAL HEART RATE DECELERATION [None]
  - HYPOGLYCAEMIA NEONATAL [None]
  - HYPONATRAEMIA [None]
  - INFLAMMATION [None]
  - NEONATAL DISORDER [None]
  - NEONATAL RESPIRATORY DISTRESS SYNDROME [None]
  - NEUTROPHIL COUNT INCREASED [None]
  - PYREXIA [None]
  - SMALL FOR DATES BABY [None]
  - THROMBOCYTOPENIA [None]
